FAERS Safety Report 19895284 (Version 1)
Quarter: 2021Q3

REPORT INFORMATION
  Report Type: Spontaneous
  Country: US (occurrence: US)
  Receive Date: 20210929
  Receipt Date: 20210929
  Transmission Date: 20211014
  Serious: Yes (Other)
  Sender: FDA-Public Use
  Company Number: None

PATIENT
  Age: 98 Year
  Sex: Female
  Weight: 56.2 kg

DRUGS (7)
  1. SACCHROMYCES BOULARDII [Concomitant]
  2. WARFARIN [Concomitant]
     Active Substance: WARFARIN
  3. TENORMIN [Concomitant]
     Active Substance: ATENOLOL
  4. DIGOXIN. [Concomitant]
     Active Substance: DIGOXIN
  5. FUROSEMIDE. [Concomitant]
     Active Substance: FUROSEMIDE
  6. CASIRIVIMAB/IMDEVIMAB [Suspect]
     Active Substance: CASIRIVIMAB\IMDEVIMAB
     Indication: COVID-19
     Dosage: ?          OTHER FREQUENCY:ONCE;?
     Route: 042
     Dates: start: 20210803, end: 20210803
  7. ENOXAPARIN [Concomitant]
     Active Substance: ENOXAPARIN

REACTIONS (11)
  - Back pain [None]
  - Fall [None]
  - Pyrexia [None]
  - Infusion related reaction [None]
  - Apnoea [None]
  - International normalised ratio increased [None]
  - Hyponatraemia [None]
  - Wound [None]
  - Nausea [None]
  - Pulse absent [None]
  - Vomiting [None]

NARRATIVE: CASE EVENT DATE: 20210803
